FAERS Safety Report 5660740-3 (Version None)
Quarter: 2008Q1

REPORT INFORMATION
  Report Type: 
  Country: None (occurrence: None)
  Receive Date: 20080311
  Receipt Date: 20080227
  Transmission Date: 20080703
  Serious: Yes (Other)
  Sender: FDA-Public Use
  Company Number: GB-ELI_LILLY_AND_COMPANY-GB200802006805

PATIENT
  Age: 68 Year
  Sex: Female

DRUGS (1)
  1. XIGRIS [Suspect]
     Route: 042

REACTIONS (1)
  - THROMBOCYTOPENIA [None]
